FAERS Safety Report 10625110 (Version 1)
Quarter: 2014Q4

REPORT INFORMATION
  Report Type: Report from Study
  Country: ES (occurrence: None)
  Receive Date: 20141202
  Receipt Date: 20141202
  Transmission Date: 20150529
  Serious: Yes (Life-Threatening, Hospitalization, Other)
  Sender: FDA-Public Use
  Company Number: B0982220A

PATIENT
  Age: 32 Year
  Sex: Male
  Weight: 68 kg

DRUGS (11)
  1. OMEPRAZOL [Concomitant]
     Active Substance: OMEPRAZOLE
  2. IBUPROFEN. [Concomitant]
     Active Substance: IBUPROFEN
  3. MARAVIROC [Suspect]
     Active Substance: MARAVIROC
     Indication: HIV INFECTION
     Dates: start: 20130723, end: 20140321
  4. TENOFOVIR [Concomitant]
     Active Substance: TENOFOVIR
  5. PARACETAMOL (MEDICATION  UNKNOWN) [Concomitant]
  6. ATOVAQUONE. [Concomitant]
     Active Substance: ATOVAQUONE
  7. EFAVIRENZ [Concomitant]
     Active Substance: EFAVIRENZ
  8. PANTOPRAZOL (PANTOPRAZOLE) [Concomitant]
  9. AMOXICILLIN + CLAVULANIC ACID [Concomitant]
     Active Substance: AMOXICILLIN\CLAVULANIC ACID
  10. EMTRICITABINE [Concomitant]
     Active Substance: EMTRICITABINE
  11. LORAZEPAM. [Concomitant]
     Active Substance: LORAZEPAM

REACTIONS (1)
  - Non-Hodgkin^s lymphoma [None]

NARRATIVE: CASE EVENT DATE: 20140307
